FAERS Safety Report 4811972-5 (Version None)
Quarter: 2005Q4

REPORT INFORMATION
  Report Type: 
  Country: None (occurrence: None)
  Receive Date: 20051028
  Receipt Date: 20041021
  Transmission Date: 20060501
  Serious: Yes (Hospitalization)
  Sender: FDA-Public Use
  Company Number: US-GLAXOSMITHKLINE-A0530829A

PATIENT
  Age: 38 Year
  Sex: Female

DRUGS (16)
  1. ADVAIR DISKUS 100/50 [Suspect]
     Indication: CHRONIC OBSTRUCTIVE PULMONARY DISEASE
     Route: 055
  2. OXYGEN [Concomitant]
  3. SPIRIVA [Concomitant]
  4. FORADIL [Concomitant]
  5. FLOMAX [Concomitant]
  6. COMBIVENT [Concomitant]
  7. SERAX [Concomitant]
  8. SYNTHROID [Concomitant]
  9. TRIMETHOPRIME [Concomitant]
  10. SULFASALAZINE [Concomitant]
  11. LABETALOL [Concomitant]
  12. LIBRIUM [Concomitant]
  13. ZOCOR [Concomitant]
  14. LOMOTIL [Concomitant]
  15. HALOPERIDOL [Concomitant]
  16. TEGRETOL [Concomitant]

REACTIONS (4)
  - APHONIA [None]
  - COUGH [None]
  - PHARYNGOLARYNGEAL PAIN [None]
  - PNEUMONIA [None]
